FAERS Safety Report 13128191 (Version 1)
Quarter: 2017Q1

REPORT INFORMATION
  Report Type: Spontaneous
  Country: US (occurrence: US)
  Receive Date: 20170118
  Receipt Date: 20170118
  Transmission Date: 20170428
  Serious: No
  Sender: FDA-Public Use
  Company Number: US-NOVOPROD-518359

PATIENT
  Age: 80 Year
  Sex: Female

DRUGS (4)
  1. TRESIBA FLEXTOUCH U200 [Suspect]
     Active Substance: INSULIN DEGLUDEC
     Dosage: 18 U
     Route: 058
  2. METFORMIN [Suspect]
     Active Substance: METFORMIN HYDROCHLORIDE
     Indication: TYPE 2 DIABETES MELLITUS
     Dosage: 3 TAB
     Route: 048
  3. TRESIBA FLEXTOUCH U200 [Suspect]
     Active Substance: INSULIN DEGLUDEC
     Indication: TYPE 2 DIABETES MELLITUS
     Dosage: 20 U
     Route: 058
     Dates: start: 20160504
  4. METFORMIN [Suspect]
     Active Substance: METFORMIN HYDROCHLORIDE
     Dosage: 4 TAB
     Route: 048

REACTIONS (3)
  - Weight increased [Recovered/Resolved]
  - Blood glucose decreased [Recovered/Resolved]
  - Tinnitus [Recovered/Resolved]

NARRATIVE: CASE EVENT DATE: 2016
